FAERS Safety Report 23918172 (Version 2)
Quarter: 2024Q3

REPORT INFORMATION
  Report Type: Report from Study
  Country: US (occurrence: US)
  Receive Date: 20240530
  Receipt Date: 20240730
  Transmission Date: 20241017
  Serious: Yes (Other)
  Sender: NOVARTIS
  Company Number: US-002147023-NVSC2024US112591

PATIENT
  Sex: Female
  Weight: 58.957 kg

DRUGS (1)
  1. COSENTYX [Suspect]
     Active Substance: SECUKINUMAB
     Indication: Psoriasis
     Dosage: (START DATE IN 2024), 150 MG, QW
     Route: 058

REACTIONS (2)
  - Choking [Unknown]
  - Cough [Unknown]
